FAERS Safety Report 25390738 (Version 1)
Quarter: 2025Q2

REPORT INFORMATION
  Report Type: Spontaneous
  Country: US (occurrence: US)
  Receive Date: 20250603
  Receipt Date: 20250603
  Transmission Date: 20250716
  Serious: No
  Sender: ROCHE
  Company Number: US-ROCHE-10000297668

PATIENT
  Sex: Female

DRUGS (8)
  1. OCREVUS ZUNOVO [Suspect]
     Active Substance: HYALURONIDASE-OCSQ\OCRELIZUMAB
     Indication: Multiple sclerosis
     Route: 058
     Dates: start: 20241106
  2. OCREVUS ZUNOVO [Suspect]
     Active Substance: HYALURONIDASE-OCSQ\OCRELIZUMAB
     Route: 058
     Dates: start: 20250506
  3. OCREVUS [Suspect]
     Active Substance: OCRELIZUMAB
     Indication: Relapsing multiple sclerosis
     Route: 042
     Dates: start: 20220328
  4. AVONEX [Concomitant]
     Active Substance: INTERFERON BETA-1A
  5. TYSABRI [Concomitant]
     Active Substance: NATALIZUMAB
  6. GILENYA [Concomitant]
     Active Substance: FINGOLIMOD HYDROCHLORIDE
  7. BOTOX [Concomitant]
     Active Substance: ONABOTULINUMTOXINA
     Indication: Migraine
  8. ATORVASTATIN [Concomitant]
     Active Substance: ATORVASTATIN

REACTIONS (6)
  - Arthralgia [Unknown]
  - Pain [Unknown]
  - Rash [Unknown]
  - COVID-19 [Unknown]
  - Lymphocyte count decreased [Unknown]
  - Drug intolerance [Unknown]
